FAERS Safety Report 6952419-2 (Version None)
Quarter: 2010Q3

REPORT INFORMATION
  Report Type: 
  Country: None (occurrence: None)
  Receive Date: 20100829
  Receipt Date: 20100504
  Transmission Date: 20110219
  Serious: No
  Sender: FDA-Public Use
  Company Number: US-ABBOTT-10P-163-0642422-00

PATIENT
  Sex: Male
  Weight: 115.32 kg

DRUGS (9)
  1. NIASPAN [Suspect]
     Indication: HIGH DENSITY LIPOPROTEIN DECREASED
     Dosage: AT BEDTIME
     Dates: start: 20100401
  2. NIASPAN [Suspect]
     Dosage: AT BEDTIME
  3. CRESTOR [Concomitant]
     Indication: PRODUCT USED FOR UNKNOWN INDICATION
  4. BENICAR [Concomitant]
     Indication: PRODUCT USED FOR UNKNOWN INDICATION
  5. JANUVIA [Concomitant]
     Indication: PRODUCT USED FOR UNKNOWN INDICATION
  6. AMARYL [Concomitant]
     Indication: PRODUCT USED FOR UNKNOWN INDICATION
  7. LANTUS [Concomitant]
     Indication: PRODUCT USED FOR UNKNOWN INDICATION
  8. UNKNOWN DIABETES MEDICATION [Concomitant]
     Indication: DIABETES MELLITUS
  9. ASPIRIN [Concomitant]
     Indication: PRODUCT USED FOR UNKNOWN INDICATION

REACTIONS (3)
  - ARTHRALGIA [None]
  - FLUSHING [None]
  - PRURITUS [None]
